FAERS Safety Report 8502308-7 (Version None)
Quarter: 2012Q3

REPORT INFORMATION
  Report Type: 
  Country: None (occurrence: None)
  Receive Date: 20120711
  Receipt Date: 20120627
  Transmission Date: 20120928
  Serious: Yes (Death, Other)
  Sender: FDA-Public Use
  Company Number: CA-RANBAXY-2012US-57618

PATIENT
  Age: 24 Year
  Sex: Female

DRUGS (1)
  1. FLUCONAZOLE [Suspect]
     Indication: VULVOVAGINAL CANDIDIASIS
     Dosage: UNKNOWN
     Route: 048

REACTIONS (3)
  - DRUG ERUPTION [None]
  - HEADACHE [None]
  - SELF-MEDICATION [None]
